FAERS Safety Report 10738602 (Version 2)
Quarter: 2015Q3

REPORT INFORMATION
  Report Type: Report from Study
  Country: DE (occurrence: DE)
  Receive Date: 20150126
  Receipt Date: 20150722
  Transmission Date: 20151125
  Serious: Yes (Death, Hospitalization, Disabling, Other)
  Sender: FDA-Public Use
  Company Number: DE-CELGENE-062-50794-14020791

PATIENT
  Age: 76 Year
  Sex: Male
  Weight: 88 kg

DRUGS (5)
  1. BENZBROMARON [Concomitant]
     Indication: HYPERURICAEMIA
     Route: 065
  2. ARA-C [Concomitant]
     Active Substance: CYTARABINE
     Indication: ACUTE MYELOID LEUKAEMIA
     Route: 041
     Dates: start: 20110610, end: 20111022
  3. VIDAZA [Suspect]
     Active Substance: AZACITIDINE
     Indication: ACUTE MYELOID LEUKAEMIA
     Dosage: 75 MILLIGRAM/SQ. METER
     Route: 058
     Dates: start: 20101201, end: 20111010
  4. RAMIPRIL. [Concomitant]
     Active Substance: RAMIPRIL
     Indication: HYPERTENSION
     Route: 048
  5. ASA [Concomitant]
     Active Substance: ASPIRIN
     Indication: PRODUCT USED FOR UNKNOWN INDICATION
     Dosage: 5 MILLIGRAM
     Route: 065

REACTIONS (8)
  - Subcutaneous abscess [Recovered/Resolved]
  - Haemoptysis [Recovered/Resolved]
  - Anaemia [Not Recovered/Not Resolved]
  - Thrombocytopenia [Recovered/Resolved]
  - Acute myeloid leukaemia [Not Recovered/Not Resolved]
  - Cerebral haemorrhage [Fatal]
  - Abscess [Not Recovered/Not Resolved]
  - Leukaemic infiltration [Recovering/Resolving]

NARRATIVE: CASE EVENT DATE: 20110103
